FAERS Safety Report 9033471 (Version 1)
Quarter: 2013Q1

REPORT INFORMATION
  Report Type: Other
  Country: US (occurrence: US)
  Receive Date: 20130128
  Receipt Date: 20130128
  Transmission Date: 20140127
  Serious: Yes (Death)
  Sender: FDA-Public Use
  Company Number: US-FRI-1000042123

PATIENT
  Age: 57 Year
  Sex: Female

DRUGS (11)
  1. CITALOPRAM [Suspect]
  2. ATENOLOL [Suspect]
  3. ACETAMINOPHEN\HYDROCODONE [Suspect]
  4. OXYCODONE [Suspect]
  5. HYDROMORPHONE [Suspect]
  6. CLONAZEPAM [Suspect]
  7. BROMPHENIRAMINE [Suspect]
  8. GABAPENTIN [Suspect]
  9. IBUPROFEN [Suspect]
  10. ACETAMINOPHEN [Suspect]
  11. CELECOXIB [Suspect]

REACTIONS (2)
  - Completed suicide [Fatal]
  - Cardio-respiratory arrest [Fatal]
